FAERS Safety Report 5448754-X (Version None)
Quarter: 2007Q3

REPORT INFORMATION
  Report Type: 
  Country: None (occurrence: None)
  Receive Date: 20070911
  Receipt Date: 20070910
  Transmission Date: 20080115
  Serious: Yes (Other)
  Sender: FDA-Public Use
  Company Number: B0486437A

PATIENT
  Age: 18 Year
  Sex: Male

DRUGS (3)
  1. AUGMENTIN '125' [Suspect]
     Route: 048
     Dates: start: 20070909, end: 20070909
  2. ACETAMINOPHEN W/ PROPOXYPHENE HCL [Suspect]
     Route: 048
     Dates: start: 20070909
  3. SOLU-MEDROL [Suspect]
     Route: 048
     Dates: start: 20070909, end: 20070909

REACTIONS (6)
  - ANGIOEDEMA [None]
  - EPISTAXIS [None]
  - FEELING HOT [None]
  - SNEEZING [None]
  - URTICARIA [None]
  - VOMITING [None]
